FAERS Safety Report 11419210 (Version 1)
Quarter: 2015Q3

REPORT INFORMATION
  Report Type: Spontaneous
  Country: CA (occurrence: CA)
  Receive Date: 20150826
  Receipt Date: 20150826
  Transmission Date: 20151125
  Serious: Yes (Hospitalization)
  Sender: FDA-Public Use
  Company Number: CA-ROCHE-1626280

PATIENT
  Age: 14 Year
  Sex: Male

DRUGS (7)
  1. ADVAIR HFA [Concomitant]
     Active Substance: FLUTICASONE PROPIONATE\SALMETEROL XINAFOATE
  2. NASONEX [Concomitant]
     Active Substance: MOMETASONE FUROATE
  3. SINGULAIR [Concomitant]
     Active Substance: MONTELUKAST SODIUM
  4. EPIPEN [Concomitant]
     Active Substance: EPINEPHRINE
  5. VENTOLIN [Concomitant]
     Active Substance: ALBUTEROL SULFATE
  6. XOLAIR [Suspect]
     Active Substance: OMALIZUMAB
     Indication: ASTHMA
     Route: 058
     Dates: start: 20150515
  7. PREDNISONE. [Concomitant]
     Active Substance: PREDNISONE

REACTIONS (2)
  - Wheezing [Unknown]
  - Asthma [Unknown]

NARRATIVE: CASE EVENT DATE: 20150529
